FAERS Safety Report 7338139-3 (Version None)
Quarter: 2011Q1

REPORT INFORMATION
  Report Type: 
  Country: None (occurrence: None)
  Receive Date: 20110308
  Receipt Date: 20110228
  Transmission Date: 20110831
  Serious: Yes (Other)
  Sender: FDA-Public Use
  Company Number: US-US-EMD SERONO, INC.-234971J09USA

PATIENT
  Sex: Female
  Weight: 104 kg

DRUGS (3)
  1. ACTOS [Concomitant]
     Indication: DIABETES MELLITUS
  2. UNSPECIFIED ANTIHYPERTENSIVE MEDICATION [Concomitant]
     Indication: HYPERTENSION
  3. REBIF [Suspect]
     Indication: MULTIPLE SCLEROSIS
     Route: 058
     Dates: start: 20050614, end: 20090901

REACTIONS (1)
  - PITUITARY TUMOUR BENIGN [None]
